FAERS Safety Report 18597804 (Version 3)
Quarter: 2021Q1

REPORT INFORMATION
  Report Type: Spontaneous
  Country: US (occurrence: US)
  Receive Date: 20201209
  Receipt Date: 20210309
  Transmission Date: 20210419
  Serious: Yes (Hospitalization, Other)
  Sender: FDA-Public Use
  Company Number: US-PERRIGO-20US017425

PATIENT
  Age: 40 Year
  Sex: Male

DRUGS (2)
  1. PREVACID 24 HR [Suspect]
     Active Substance: LANSOPRAZOLE
     Indication: GASTROOESOPHAGEAL REFLUX DISEASE
     Dosage: 15 MG, QD
     Route: 065
     Dates: start: 201202, end: 201204
  2. PRILOSEC OTC [Suspect]
     Active Substance: OMEPRAZOLE MAGNESIUM
     Indication: GASTROOESOPHAGEAL REFLUX DISEASE
     Dosage: 20 MG, QD
     Route: 065
     Dates: start: 201205, end: 201207

REACTIONS (16)
  - Dialysis [Unknown]
  - Nephrolithiasis [Unknown]
  - Chronic kidney disease [Not Recovered/Not Resolved]
  - Hypertensive nephropathy [Unknown]
  - Renal hypertension [Unknown]
  - Acute kidney injury [Unknown]
  - End stage renal disease [Not Recovered/Not Resolved]
  - Haemodialysis [Not Recovered/Not Resolved]
  - Polyuria [Unknown]
  - Ischaemic nephropathy [Unknown]
  - Chronic kidney disease-mineral and bone disorder [Unknown]
  - Renal atrophy [Unknown]
  - Renal disorder [Unknown]
  - Proteinuria [Unknown]
  - Renal impairment [Unknown]
  - Nephropathy [Unknown]

NARRATIVE: CASE EVENT DATE: 2012
